FAERS Safety Report 10885494 (Version 1)
Quarter: 2015Q1

REPORT INFORMATION
  Report Type: Spontaneous
  Country: US (occurrence: None)
  Receive Date: 20150227
  Receipt Date: 20150227
  Transmission Date: 20150721
  Serious: Yes (Hospitalization)
  Sender: FDA-Public Use
  Company Number: US-H14001-15-00266

PATIENT
  Age: 28 Year
  Sex: Female

DRUGS (1)
  1. CEPHALEXIN (CEFALEXIN) [Suspect]
     Active Substance: CEPHALEXIN
     Indication: OROPHARYNGEAL PAIN

REACTIONS (2)
  - Drug reaction with eosinophilia and systemic symptoms [None]
  - Herpes simplex hepatitis [None]
